FAERS Safety Report 10252670 (Version 1)
Quarter: 2014Q2

REPORT INFORMATION
  Report Type: Spontaneous
  Country: DE (occurrence: DE)
  Receive Date: 20140623
  Receipt Date: 20140623
  Transmission Date: 20141212
  Serious: Yes (Other)
  Sender: FDA-Public Use
  Company Number: DE-PFIZER INC-2014170144

PATIENT
  Sex: Female

DRUGS (2)
  1. AMIODARONE HCL [Suspect]
     Dosage: UNK
     Route: 048
     Dates: start: 201311
  2. EUTHYROX [Concomitant]
     Dosage: UNK

REACTIONS (1)
  - Bronchitis [Not Recovered/Not Resolved]
